FAERS Safety Report 7592285-8 (Version None)
Quarter: 2011Q3

REPORT INFORMATION
  Report Type: 
  Country: None (occurrence: None)
  Receive Date: 20110706
  Receipt Date: 20110701
  Transmission Date: 20111222
  Serious: Yes (Hospitalization)
  Sender: FDA-Public Use
  Company Number: DE-BRISTOL-MYERS SQUIBB COMPANY-15764616

PATIENT
  Age: 50 Year
  Sex: Male

DRUGS (12)
  1. METOCLOPRAMIDE [Concomitant]
  2. TPN ELECTROLYTES IN PLASTIC CONTAINER [Concomitant]
     Route: 042
  3. MULTI-VITAMINS [Concomitant]
     Dosage: 1 AMPULE IN 100ML NACL
     Route: 042
  4. ARIXTRA [Concomitant]
     Route: 058
  5. CETUXIMAB [Suspect]
     Indication: NON-SMALL CELL LUNG CANCER
     Dosage: LAST INF ON 09MAY2011 CETUXIMAB 2MG/ML IV INFUSION
     Route: 042
     Dates: start: 20110401
  6. GRANISETRON [Concomitant]
     Dosage: 3MG 1 AMPULE IN 100ML NACL
     Route: 042
  7. DEXAMETHASONE [Concomitant]
     Dosage: 8MG IN 100ML NACL
     Route: 042
  8. LIPOVENOES [Concomitant]
     Route: 042
  9. RAMIPRIL [Concomitant]
     Route: 048
  10. PANTOPRAZOLE [Concomitant]
     Route: 048
  11. JONOSTERIL [Concomitant]
     Route: 042
  12. GEMCITABINE [Suspect]
     Indication: NON-SMALL CELL LUNG CANCER
     Dosage: LAST INF ON 02MAY2011 1000MG/M2; ON DAY 1AND 8
     Route: 042
     Dates: start: 20110401

REACTIONS (3)
  - CONFUSIONAL STATE [None]
  - FATIGUE [None]
  - LUNG INFILTRATION [None]
